FAERS Safety Report 12138701 (Version 2)
Quarter: 2016Q1

REPORT INFORMATION
  Report Type: Spontaneous
  Country: US (occurrence: US)
  Receive Date: 20160302
  Receipt Date: 20160302
  Transmission Date: 20160526
  Serious: Yes (Other)
  Sender: FDA-Public Use
  Company Number: US-JNJFOC-20160224586

PATIENT
  Age: 69 Year
  Sex: Male

DRUGS (3)
  1. SIMEPREVIR [Suspect]
     Active Substance: SIMEPREVIR
     Indication: HEPATITIS C
     Route: 065
  2. USTEKINUMAB [Concomitant]
     Active Substance: USTEKINUMAB
     Indication: PSORIASIS
     Dates: start: 2012
  3. SOFOSBUVIR [Suspect]
     Active Substance: SOFOSBUVIR
     Indication: HEPATITIS C

REACTIONS (1)
  - Hepatitis C [Unknown]
